FAERS Safety Report 9045181 (Version 1)
Quarter: 2013Q1

REPORT INFORMATION
  Report Type: Report from Study
  Country: US (occurrence: US)
  Receive Date: 20130130
  Receipt Date: 20130130
  Transmission Date: 20140127
  Serious: No
  Sender: FDA-Public Use
  Company Number: US-ABBOTT-12P-163-0973827-00

PATIENT
  Age: 54 None
  Sex: Female
  Weight: 86.26 kg

DRUGS (15)
  1. HUMIRA 40 MG/0.8 ML PEN [Suspect]
     Indication: RHEUMATOID ARTHRITIS
     Dates: start: 201205
  2. RELAFEN [Suspect]
     Indication: RHEUMATOID ARTHRITIS
  3. ARAVA [Suspect]
     Indication: RHEUMATOID ARTHRITIS
  4. METOPROLOL [Concomitant]
     Indication: HYPERTENSION
  5. DOXAZOFIN [Concomitant]
     Indication: HYPERTENSION
  6. PREDNISONE [Concomitant]
     Indication: RHEUMATOID ARTHRITIS
  7. LEVOTHYROXINE [Concomitant]
     Indication: HYPOTHYROIDISM
  8. FUROSEMIDE [Concomitant]
     Indication: HYPERTENSION
  9. VITAMIN D [Concomitant]
     Indication: VITAMIN D DECREASED
  10. XANAX [Concomitant]
     Indication: ANXIETY
  11. HYDROCODONE [Concomitant]
     Indication: PAIN
  12. AMBIEN [Concomitant]
     Indication: INSOMNIA
  13. FLEXERIL [Concomitant]
     Indication: MUSCLE SPASMS
  14. LOVASTATIN [Concomitant]
     Indication: BLOOD CHOLESTEROL INCREASED
  15. ACIDOPHILUS [Concomitant]
     Indication: PROBIOTIC THERAPY

REACTIONS (2)
  - Clostridium difficile infection [Not Recovered/Not Resolved]
  - Diarrhoea [Not Recovered/Not Resolved]
